FAERS Safety Report 6510991-0 (Version None)
Quarter: 2009Q4

REPORT INFORMATION
  Report Type: 
  Country: None (occurrence: None)
  Receive Date: 20091222
  Receipt Date: 20090211
  Transmission Date: 20100525
  Serious: No
  Sender: FDA-Public Use
  Company Number: US-ASTRAZENECA-2009UW04034

PATIENT
  Sex: Female
  Weight: 92.1 kg

DRUGS (6)
  1. CRESTOR [Suspect]
     Indication: BLOOD CHOLESTEROL INCREASED
     Route: 048
     Dates: start: 20090101
  2. PROZAC [Concomitant]
     Indication: DEPRESSION
     Route: 048
  3. MAXZIDE [Concomitant]
     Indication: HYPERTENSION
     Route: 048
  4. METFORMIN HCL [Concomitant]
     Indication: DIABETES MELLITUS
     Route: 048
  5. ASPIRIN [Concomitant]
     Route: 048
  6. BLOOD PRESSURE MED [Concomitant]
     Indication: HYPERTENSION
     Route: 048

REACTIONS (1)
  - HEART RATE INCREASED [None]
